FAERS Safety Report 20008816 (Version 8)
Quarter: 2023Q2

REPORT INFORMATION
  Report Type: Report from Study
  Country: GB (occurrence: GB)
  Receive Date: 20211028
  Receipt Date: 20230417
  Transmission Date: 20230721
  Serious: Yes (Death, Hospitalization)
  Sender: FDA-Public Use
  Company Number: GB-GLAXOSMITHKLINE-GB2021GSK221924

PATIENT

DRUGS (49)
  1. BELANTAMAB MAFODOTIN [Suspect]
     Active Substance: BELANTAMAB MAFODOTIN
     Indication: Plasma cell myeloma
     Dosage: 2.5 MG/KG
     Route: 042
     Dates: start: 20210518
  2. BELANTAMAB MAFODOTIN [Suspect]
     Active Substance: BELANTAMAB MAFODOTIN
     Dosage: 1.9 MG/KG
     Route: 042
     Dates: start: 20210629, end: 20210810
  3. BORTEZOMIB [Suspect]
     Active Substance: BORTEZOMIB
     Indication: Plasma cell myeloma
     Dosage: UNK
     Route: 042
     Dates: start: 20210518
  4. DEXAMETHASONE [Suspect]
     Active Substance: DEXAMETHASONE
     Indication: Plasma cell myeloma
     Dosage: UNK
     Route: 048
     Dates: start: 20210518
  5. ACYCLOVIR [Concomitant]
     Active Substance: ACYCLOVIR
     Indication: Antiviral prophylaxis
     Dosage: 200 MG, TID
     Route: 048
     Dates: start: 20210518, end: 20210608
  6. ACYCLOVIR [Concomitant]
     Active Substance: ACYCLOVIR
     Indication: Prophylaxis
     Dosage: 200 MG, TID
     Route: 048
     Dates: start: 20210608, end: 20210629
  7. ACYCLOVIR [Concomitant]
     Active Substance: ACYCLOVIR
     Dosage: 200 MG, TID
     Route: 048
     Dates: start: 20210629, end: 20210719
  8. ACYCLOVIR [Concomitant]
     Active Substance: ACYCLOVIR
     Dosage: 200 MG, TID
     Route: 048
     Dates: start: 20210719, end: 20210810
  9. ACYCLOVIR [Concomitant]
     Active Substance: ACYCLOVIR
     Dosage: 200 MG, TID
     Route: 048
     Dates: start: 20210810, end: 20210831
  10. ACYCLOVIR [Concomitant]
     Active Substance: ACYCLOVIR
     Dosage: 200 MG, TID
     Route: 048
     Dates: start: 20210831, end: 20210920
  11. ACYCLOVIR [Concomitant]
     Active Substance: ACYCLOVIR
     Dosage: 200 MG, TID
     Route: 048
     Dates: start: 20210920, end: 20211012
  12. ACYCLOVIR [Concomitant]
     Active Substance: ACYCLOVIR
     Dosage: 200 MG, TID
     Route: 048
     Dates: start: 20211012
  13. COTRIMOXAZOLE [Concomitant]
     Active Substance: SULFAMETHOXAZOLE\TRIMETHOPRIM
     Indication: Prophylaxis
     Dosage: 960 MG, Z(3 TIMES PER WEEK)
     Route: 048
     Dates: start: 20210519
  14. COTRIMOXAZOLE [Concomitant]
     Active Substance: SULFAMETHOXAZOLE\TRIMETHOPRIM
     Indication: Prophylaxis
     Dosage: 1 DF, Z (3 TIMES PER WEEK)
     Route: 048
     Dates: start: 20210609, end: 20210719
  15. COTRIMOXAZOLE [Concomitant]
     Active Substance: SULFAMETHOXAZOLE\TRIMETHOPRIM
     Dosage: 1 DF, Z (3 TIMES PER WEEK)
     Route: 048
     Dates: start: 20210719
  16. COTRIMOXAZOLE [Concomitant]
     Active Substance: SULFAMETHOXAZOLE\TRIMETHOPRIM
     Dosage: 1 DF, Z (3 TIMES PER WEEK)
     Route: 048
     Dates: start: 20210811
  17. COTRIMOXAZOLE [Concomitant]
     Active Substance: SULFAMETHOXAZOLE\TRIMETHOPRIM
     Dosage: 1 DF, Z (3 TIMES PER WEEK)
     Route: 048
     Dates: start: 20210901
  18. COTRIMOXAZOLE [Concomitant]
     Active Substance: SULFAMETHOXAZOLE\TRIMETHOPRIM
     Dosage: 1 DF, Z (3 TIMES PER WEEK)
     Route: 048
     Dates: start: 20210920
  19. COTRIMOXAZOLE [Concomitant]
     Active Substance: SULFAMETHOXAZOLE\TRIMETHOPRIM
     Dosage: 1 DF, Z (3 TIMES PER WEEK)
     Route: 048
     Dates: start: 20211013
  20. HYPROMELLOSES [Concomitant]
     Active Substance: HYPROMELLOSES
     Indication: Prophylaxis
     Dosage: 1(0.3%) GTT, PRN
     Route: 047
     Dates: start: 20210518, end: 20210608
  21. HYPROMELLOSES [Concomitant]
     Active Substance: HYPROMELLOSES
     Dosage: 1(0.3%) GTT, PRN
     Route: 047
     Dates: start: 20210608, end: 20210629
  22. HYPROMELLOSES [Concomitant]
     Active Substance: HYPROMELLOSES
     Dosage: 1(0.3%) GTT, PRN
     Route: 047
     Dates: start: 20210629, end: 20210719
  23. HYPROMELLOSES [Concomitant]
     Active Substance: HYPROMELLOSES
     Dosage: 1(0.3%) GTT, PRN
     Route: 047
     Dates: start: 20210719, end: 20210831
  24. HYPROMELLOSES [Concomitant]
     Active Substance: HYPROMELLOSES
     Dosage: 1(0.3%) GTT, PRN
     Route: 047
     Dates: start: 20210831, end: 20210920
  25. HYPROMELLOSES [Concomitant]
     Active Substance: HYPROMELLOSES
     Dosage: 1(0.3%) GTT, PRN
     Route: 047
     Dates: start: 20210920, end: 20211012
  26. HYPROMELLOSES [Concomitant]
     Active Substance: HYPROMELLOSES
     Dosage: 1(0.3%) GTT, PRN
     Route: 047
     Dates: start: 20211012
  27. LANSOPRAZOLE [Concomitant]
     Active Substance: LANSOPRAZOLE
     Indication: Prophylaxis against gastrointestinal ulcer
     Dosage: 30 MG, QD
     Route: 048
     Dates: start: 20210518, end: 20210608
  28. LANSOPRAZOLE [Concomitant]
     Active Substance: LANSOPRAZOLE
     Indication: Prophylaxis
     Dosage: 30 MG, QD
     Route: 048
     Dates: start: 20210608, end: 20210629
  29. LANSOPRAZOLE [Concomitant]
     Active Substance: LANSOPRAZOLE
     Dosage: 30 MG, QD
     Route: 048
     Dates: start: 20210629, end: 20210719
  30. LANSOPRAZOLE [Concomitant]
     Active Substance: LANSOPRAZOLE
     Dosage: 30 MG, QD
     Route: 048
     Dates: start: 20210719, end: 20210810
  31. LANSOPRAZOLE [Concomitant]
     Active Substance: LANSOPRAZOLE
     Dosage: 30 MG, QD
     Route: 048
     Dates: start: 20210810, end: 20210831
  32. LANSOPRAZOLE [Concomitant]
     Active Substance: LANSOPRAZOLE
     Dosage: 30 MG, QD
     Route: 048
     Dates: start: 20210831
  33. LANSOPRAZOLE [Concomitant]
     Active Substance: LANSOPRAZOLE
     Dosage: 30 MG, QD
     Route: 048
     Dates: start: 20210920
  34. LANSOPRAZOLE [Concomitant]
     Active Substance: LANSOPRAZOLE
     Dosage: 30 MG, QD
     Route: 048
     Dates: start: 20211012
  35. DOMPERIDONE [Concomitant]
     Active Substance: DOMPERIDONE
     Indication: Prophylaxis of nausea and vomiting
     Dosage: 10 MG, PRN
     Route: 048
     Dates: start: 20210518, end: 20210608
  36. DOMPERIDONE [Concomitant]
     Active Substance: DOMPERIDONE
     Indication: Nausea
     Dosage: 10 MG, PRN
     Route: 048
     Dates: start: 20210608
  37. DOMPERIDONE [Concomitant]
     Active Substance: DOMPERIDONE
     Indication: Vomiting
     Dosage: 10 MG, PRN
     Route: 048
     Dates: start: 20210719
  38. DOMPERIDONE [Concomitant]
     Active Substance: DOMPERIDONE
     Dosage: 10 MG, PRN
     Route: 048
     Dates: start: 20210831, end: 20211012
  39. LIDOCAINE + ADRENALINE [Concomitant]
     Indication: Anaesthesia
     Dosage: 3.6 ML, SINGLE, 2%/1:80,000 INJECTION
     Route: 050
     Dates: start: 20210527, end: 20210527
  40. LIDOCAINE + ADRENALINE [Concomitant]
     Dosage: 3.6 ML, SINGLE, 2%/1:80,000 INJECTION
     Route: 050
     Dates: start: 20210611, end: 20210611
  41. LIDOCAINE + ADRENALINE [Concomitant]
     Dosage: 3.6 ML, SINGLE, 2%/1:80,000 INJECTION
     Route: 050
     Dates: start: 20211027, end: 20211027
  42. SEPTANEST 1:100,000 INJECTION (ADRENALINE + ARTICAINE) [Concomitant]
     Indication: Personal hygiene
     Dosage: 4.4 ML, SINGLE
     Route: 050
     Dates: start: 20210527, end: 20210527
  43. SEPTANEST 1:100,000 INJECTION (ADRENALINE + ARTICAINE) [Concomitant]
     Dosage: 2.2 ML, SINGLE
     Route: 050
     Dates: start: 20210611, end: 20210611
  44. SEPTANEST 1:100,000 INJECTION (ADRENALINE + ARTICAINE) [Concomitant]
     Dosage: 2.2 ML, SINGLE
     Route: 050
     Dates: start: 20211027, end: 20211027
  45. COLGATE DURAPHAT [Concomitant]
     Active Substance: SODIUM FLUORIDE
     Indication: Dental care
     Dosage: 0.75 ML, SINGLE
     Route: 004
     Dates: start: 20211027, end: 20211027
  46. POTASSIUM CHLORIDE\SODIUM CHLORIDE [Concomitant]
     Active Substance: POTASSIUM CHLORIDE\SODIUM CHLORIDE
     Indication: Mineral supplementation
     Dosage: 1000 ML, SINGLE
     Route: 042
     Dates: start: 20211019, end: 20211019
  47. ACETAMINOPHEN [Concomitant]
     Active Substance: ACETAMINOPHEN
     Indication: Pain
     Dosage: 1 G, SINGLE
     Route: 048
     Dates: start: 20211019, end: 20211019
  48. CALCIUM CARBONATE\CHOLECALCIFEROL [Concomitant]
     Active Substance: CALCIUM CARBONATE\CHOLECALCIFEROL
     Indication: Mineral supplementation
     Dosage: 1 DF
     Dates: start: 20211019
  49. AMOXICILLIN\CLAVULANATE POTASSIUM [Concomitant]
     Active Substance: AMOXICILLIN\CLAVULANATE POTASSIUM
     Indication: Prophylaxis
     Dosage: 1 DF, Z Q8H
     Route: 048
     Dates: start: 20211019

REACTIONS (1)
  - COVID-19 pneumonia [Fatal]

NARRATIVE: CASE EVENT DATE: 20211023
